FAERS Safety Report 7064941-1 (Version None)
Quarter: 2010Q4

REPORT INFORMATION
  Report Type: 
  Country: None (occurrence: None)
  Receive Date: 20101027
  Receipt Date: 19931231
  Transmission Date: 20110411
  Serious: Yes (Death, Hospitalization)
  Sender: FDA-Public Use
  Company Number: FR-ROCHE-930500715001

PATIENT
  Age: 38 Year
  Sex: Female

DRUGS (2)
  1. ROFERON-A [Suspect]
     Indication: MALIGNANT MELANOMA
     Route: 058
     Dates: start: 19910601, end: 19930501
  2. EFFERALGAN [Concomitant]
     Route: 048
     Dates: start: 19910601

REACTIONS (2)
  - MALIGNANT NEOPLASM PROGRESSION [None]
  - RAYNAUD'S PHENOMENON [None]
